FAERS Safety Report 5563862-0 (Version None)
Quarter: 2007Q4

REPORT INFORMATION
  Report Type: 
  Country: None (occurrence: None)
  Receive Date: 20071217
  Receipt Date: 20070924
  Transmission Date: 20080405
  Serious: No
  Sender: FDA-Public Use
  Company Number: US-ASTRAZENECA-2007UW22364

PATIENT
  Age: 60 Year
  Sex: Female
  Weight: 58.1 kg

DRUGS (1)
  1. CRESTOR [Suspect]
     Indication: BLOOD CHOLESTEROL INCREASED
     Route: 048

REACTIONS (4)
  - FATIGUE [None]
  - FEELING ABNORMAL [None]
  - MALAISE [None]
  - PAIN [None]
